FAERS Safety Report 9459484 (Version 5)
Quarter: 2013Q4

REPORT INFORMATION
  Report Type: Spontaneous
  Country: JP (occurrence: JP)
  Receive Date: 20130815
  Receipt Date: 20131206
  Transmission Date: 20140711
  Serious: Yes (Hospitalization, Other)
  Sender: FDA-Public Use
  Company Number: JP-ROCHE-1261230

PATIENT
  Age: 64 Year
  Sex: Female

DRUGS (6)
  1. RITUXIMAB [Suspect]
     Indication: LYMPHOCYTIC LYMPHOMA
     Dosage: THERAPY DURATION: 8 DAYS
     Route: 042
     Dates: start: 20120315, end: 20120705
  2. FLUDARABINE [Concomitant]
     Indication: LYMPHOCYTIC LYMPHOMA
     Dosage: DAYS: 1-3
     Route: 065
     Dates: start: 20120315, end: 20120512
  3. VALTREX [Concomitant]
     Indication: PROPHYLAXIS
     Route: 048
  4. SELBEX [Concomitant]
     Indication: PROPHYLAXIS
     Route: 048
  5. MYSLEE [Concomitant]
     Indication: INSOMNIA
     Route: 048
  6. BAKTAR [Concomitant]
     Indication: PROPHYLAXIS
     Route: 048

REACTIONS (1)
  - Progressive multifocal leukoencephalopathy [Not Recovered/Not Resolved]
